FAERS Safety Report 15537469 (Version 2)
Quarter: 2018Q4

REPORT INFORMATION
  Report Type: Spontaneous
  Country: FR (occurrence: FR)
  Receive Date: 20181022
  Receipt Date: 20181025
  Transmission Date: 20190205
  Serious: Yes (Life-Threatening, Hospitalization, Other)
  Sender: FDA-Public Use
  Company Number: FR-PFIZER INC-2018420267

PATIENT
  Age: 67 Year
  Sex: Male
  Weight: 64 kg

DRUGS (7)
  1. DIHYDROCODEINE [Suspect]
     Active Substance: DIHYDROCODEINE
     Dosage: UNK
     Route: 048
  2. CODEINE [Suspect]
     Active Substance: CODEINE
     Dosage: UNK
     Route: 048
  3. ETHYLMORPHINE [Suspect]
     Active Substance: ETHYLMORPHINE
     Dosage: UNK
     Route: 048
  4. DONORMYL [DOXYLAMINE SUCCINATE] [Concomitant]
     Dosage: UNK
  5. XANAX [Suspect]
     Active Substance: ALPRAZOLAM
     Indication: ANXIETY
     Dosage: 0.5 MG, 1X/DAY
     Route: 048
     Dates: end: 20180828
  6. NOCTAMIDE [Suspect]
     Active Substance: LORMETAZEPAM
     Indication: INSOMNIA
     Dosage: 2 MG, 1X/DAY
     Route: 048
     Dates: end: 20180828
  7. MORPHINE [Suspect]
     Active Substance: MORPHINE
     Dosage: UNK
     Route: 048

REACTIONS (10)
  - Respiratory arrest [Recovered/Resolved]
  - Retrograde amnesia [Not Recovered/Not Resolved]
  - Miosis [Recovered/Resolved]
  - Sinus bradycardia [Recovered/Resolved]
  - Blood pressure decreased [Recovered/Resolved]
  - Hyperglycaemia [Recovered/Resolved]
  - Hypothermia [Recovered/Resolved]
  - Amnesia [Recovered/Resolved]
  - Coma [Recovered/Resolved]
  - Vomiting [Recovered/Resolved]

NARRATIVE: CASE EVENT DATE: 20180828
